FAERS Safety Report 6499195-8 (Version None)
Quarter: 2009Q4

REPORT INFORMATION
  Report Type: 
  Country: None (occurrence: None)
  Receive Date: 20091127
  Receipt Date: 20090714
  Transmission Date: 20100525
  Serious: Yes (Other)
  Sender: FDA-Public Use
  Company Number: WAES 0805USA00753

PATIENT
  Age: 57 Year
  Sex: Female
  Weight: 82.5547 kg

DRUGS (2)
  1. FOSAMAX [Suspect]
     Indication: OSTEOPENIA
     Dosage: PO
     Route: 048
     Dates: start: 20050302, end: 20060701
  2. FOSAMAX [Suspect]
     Indication: OSTEOPOROSIS
     Dosage: PO
     Route: 048
     Dates: start: 20050302, end: 20060701

REACTIONS (15)
  - CERUMEN IMPACTION [None]
  - CONSTIPATION [None]
  - DEPRESSION [None]
  - FATIGUE [None]
  - GASTROOESOPHAGEAL REFLUX DISEASE [None]
  - HYPERTENSION [None]
  - HYPOACUSIS [None]
  - HYPOTHYROIDISM [None]
  - OPEN ANGLE GLAUCOMA [None]
  - OSTEOARTHRITIS [None]
  - OSTEONECROSIS [None]
  - PEPTIC ULCER [None]
  - PERIODONTITIS [None]
  - URGE INCONTINENCE [None]
  - WEIGHT INCREASED [None]
